FAERS Safety Report 17651942 (Version 2)
Quarter: 2020Q3

REPORT INFORMATION
  Report Type: Spontaneous
  Country: JP (occurrence: JP)
  Receive Date: 20200409
  Receipt Date: 20200909
  Transmission Date: 20201102
  Serious: Yes (Death, Hospitalization, Other)
  Sender: FDA-Public Use
  Company Number: JP-ASTELLAS-2020JP004907

PATIENT
  Age: 67 Year
  Sex: Male

DRUGS (8)
  1. XOSPATA [Suspect]
     Active Substance: GILTERITINIB
     Route: 048
     Dates: start: 20200326
  2. FEBURIC [Concomitant]
     Active Substance: FEBUXOSTAT
     Indication: PRODUCT USED FOR UNKNOWN INDICATION
     Dosage: 20 MG/DAY, UNKNOWN FREQ.
     Route: 048
  3. XOSPATA [Suspect]
     Active Substance: GILTERITINIB
     Indication: ACUTE MYELOID LEUKAEMIA
     Dosage: UNK UNK, UNKNOWN FREQ.
     Route: 048
     Dates: start: 20200225, end: 20200309
  4. MAGNESIUM OXIDE. [Concomitant]
     Active Substance: MAGNESIUM OXIDE
     Indication: PRODUCT USED FOR UNKNOWN INDICATION
     Dosage: 250 MG/DAY, UNKNOWN FREQ.
     Route: 048
  5. TRAZENTA [Concomitant]
     Active Substance: LINAGLIPTIN
     Indication: PRODUCT USED FOR UNKNOWN INDICATION
     Dosage: 5 MG/DAY, UNKNOWN FREQ.
     Route: 048
  6. LANSOPRAZOLE. [Concomitant]
     Active Substance: LANSOPRAZOLE
     Indication: PRODUCT USED FOR UNKNOWN INDICATION
     Dosage: 15 MG/DAY, UNKNOWN FREQ.
     Route: 048
  7. PREDONINE [Concomitant]
     Active Substance: PREDNISOLONE
     Indication: PRODUCT USED FOR UNKNOWN INDICATION
     Dosage: UNK UNK, UNKNOWN FREQ.
     Route: 065
  8. GLIMEPIRIDE. [Concomitant]
     Active Substance: GLIMEPIRIDE
     Indication: PRODUCT USED FOR UNKNOWN INDICATION
     Dosage: 1 MG/DAY, UNKNOWN FREQ.
     Route: 048

REACTIONS (3)
  - Acute myeloid leukaemia [Fatal]
  - Acute myeloid leukaemia [Unknown]
  - Bacterial infection [Recovering/Resolving]

NARRATIVE: CASE EVENT DATE: 20200309
